FAERS Safety Report 7818336 (Version 3)
Quarter: 2014Q3

REPORT INFORMATION
  Report Type: Spontaneous
  Country: DK (occurrence: DK)
  Receive Date: 20110218
  Receipt Date: 20140729
  Transmission Date: 20150326
  Serious: Yes (Hospitalization)
  Sender: FDA-Public Use
  Company Number: DK-RANBAXY-2011RR-41395

PATIENT
  Sex: Male
  Weight: 70 kg

DRUGS (1)
  1. SIMVASTATIN. [Suspect]
     Active Substance: SIMVASTATIN
     Indication: HYPERCHOLESTEROLAEMIA
     Dosage: 40 MG QD
     Route: 048
     Dates: start: 20081201, end: 20091101

REACTIONS (7)
  - Decreased appetite [Recovered/Resolved]
  - Exfoliative rash [Recovered/Resolved]
  - Autoimmune disorder [Recovered/Resolved]
  - Dermatitis [Recovered/Resolved]
  - Skin necrosis [Recovered/Resolved]
  - Subcutaneous abscess [Recovered/Resolved]
  - Vasculitis [Recovered/Resolved]

NARRATIVE: CASE EVENT DATE: 20091001
